FAERS Safety Report 6954719-9 (Version None)
Quarter: 2010Q3

REPORT INFORMATION
  Report Type: 
  Country: None (occurrence: None)
  Receive Date: 20100829
  Receipt Date: 20080528
  Transmission Date: 20110219
  Serious: No
  Sender: FDA-Public Use
  Company Number: US-ALLERGAN-0806285US

PATIENT
  Age: 80 Year
  Sex: Female

DRUGS (4)
  1. RESTASIS [Suspect]
     Indication: DRY EYE
     Dosage: UNK, BID
     Route: 047
     Dates: start: 20080521
  2. RESTASIS [Suspect]
     Indication: BLEPHARITIS
  3. FML [Suspect]
     Indication: BLEPHARITIS
     Dosage: UNK, BID
     Route: 047
     Dates: start: 20080521
  4. FML [Suspect]
     Indication: DRY EYE

REACTIONS (1)
  - VISION BLURRED [None]
